FAERS Safety Report 16379049 (Version 1)
Quarter: 2019Q2

REPORT INFORMATION
  Report Type: Spontaneous
  Country: JP (occurrence: JP)
  Receive Date: 20190531
  Receipt Date: 20190531
  Transmission Date: 20190711
  Serious: Yes (Death, Other)
  Sender: FDA-Public Use
  Company Number: JP-PFIZER INC-2019228291

PATIENT
  Age: 31 Year
  Sex: Female

DRUGS (3)
  1. ALBUMIN TANNATE [Concomitant]
     Active Substance: ALBUMIN BOVINE\TANNIC ACID
  2. PHELLOBERIN [Concomitant]
     Active Substance: BERBERINE\GERANIUM
  3. INLYTA [Suspect]
     Active Substance: AXITINIB
     Indication: METASTATIC RENAL CELL CARCINOMA

REACTIONS (3)
  - Diarrhoea [Recovered/Resolved]
  - Neoplasm progression [Fatal]
  - Haemorrhage [Not Recovered/Not Resolved]

NARRATIVE: CASE EVENT DATE: 201705
